FAERS Safety Report 23466278 (Version 2)
Quarter: 2024Q4

REPORT INFORMATION
  Report Type: Spontaneous
  Country: US (occurrence: US)
  Receive Date: 20240201
  Receipt Date: 20241108
  Transmission Date: 20250115
  Serious: Yes (Death, Other)
  Sender: PFIZER
  Company Number: US-PFIZER INC-PV202300189722

PATIENT
  Age: 68 Year
  Sex: Female

DRUGS (3)
  1. MEKTOVI [Suspect]
     Active Substance: BINIMETINIB
     Indication: Colorectal cancer metastatic
     Dosage: 45 MG, 2X/DAY, TAKE 3 TABLETS (45 MG) BY MOUTH TWICE DAILY
     Route: 048
  2. MEKTOVI [Suspect]
     Active Substance: BINIMETINIB
     Dosage: TAKE 30MG PO TWICE DAILY
     Route: 048
  3. BRAFTOVI [Suspect]
     Active Substance: ENCORAFENIB
     Indication: Colorectal cancer metastatic
     Dosage: 225 MG, DAILY
     Route: 048

REACTIONS (3)
  - Death [Fatal]
  - Neuropathy peripheral [Unknown]
  - Off label use [Unknown]
